FAERS Safety Report 7301872-3 (Version None)
Quarter: 2011Q1

REPORT INFORMATION
  Report Type: 
  Country: None (occurrence: None)
  Receive Date: 20110218
  Receipt Date: 20110209
  Transmission Date: 20110831
  Serious: Yes (Other)
  Sender: FDA-Public Use
  Company Number: FR-ROCHE-739761

PATIENT
  Sex: Female
  Weight: 83 kg

DRUGS (6)
  1. CYCLOPHOSPHAMIDE [Suspect]
     Dosage: LAST DOSE PRIOR TO SAE:02 FEB 2010. FORM: UNSPECIFIED, CUMULATIVE DOSE: 3784 MG
     Route: 042
     Dates: start: 20091130
  2. BEVACIZUMAB [Suspect]
     Dosage: LAST DOSE PRIOR TO SAE:08 OCT 2010, CUMULATIVE DOSE:12480 MG
     Route: 042
  3. BEVACIZUMAB [Suspect]
     Route: 042
     Dates: start: 20091130, end: 20100503
  4. DOCETAXEL [Suspect]
     Dosage: CUMULATIVE DOSE: 728 MG
     Route: 042
     Dates: start: 20100223, end: 20100503
  5. FLUOROURACIL [Suspect]
     Dosage: CUMULATIVE DOSE: 3784 MG
     Route: 042
     Dates: start: 20091130, end: 20100202
  6. EPIRUBICIN [Suspect]
     Dosage: LAST DOSE PRIOR TO SAE:2 FEB 2010, FORM AND FREQUENCY: UNSPECIFIED, CUMULATIVE DOSE: 756 MG
     Route: 042
     Dates: start: 20091130

REACTIONS (1)
  - TOOTH FRACTURE [None]
